FAERS Safety Report 7464964-4 (Version None)
Quarter: 2011Q2

REPORT INFORMATION
  Report Type: 
  Country: None (occurrence: None)
  Receive Date: 20110509
  Receipt Date: 20110428
  Transmission Date: 20111010
  Serious: Yes (Death, Other)
  Sender: FDA-Public Use
  Company Number: FR-JNJFOC-20110207640

PATIENT
  Age: 57 Year
  Sex: Female

DRUGS (4)
  1. DURAGESIC-100 [Suspect]
     Indication: CANCER PAIN
     Route: 062
  2. FENTANYL CITRATE [Suspect]
     Route: 048
  3. FENTANYL CITRATE [Suspect]
     Indication: CANCER PAIN
     Dosage: 2 TO 4 TABLETS PER DAY
     Route: 048
  4. DURAGESIC-100 [Suspect]
     Route: 062

REACTIONS (2)
  - NEOPLASM MALIGNANT [None]
  - MOUTH ULCERATION [None]
